FAERS Safety Report 20975850 (Version 2)
Quarter: 2022Q2

REPORT INFORMATION
  Report Type: Report from Study
  Country: DE (occurrence: None)
  Receive Date: 20220617
  Receipt Date: 20220620
  Transmission Date: 20220720
  Serious: Yes (Other)
  Sender: FDA-Public Use
  Company Number: DE-ROCHE-3115341

PATIENT
  Age: 66 Year
  Sex: Female

DRUGS (5)
  1. POLATUZUMAB VEDOTIN [Suspect]
     Active Substance: POLATUZUMAB VEDOTIN
     Indication: Diffuse large B-cell lymphoma
     Dosage: 1.8 MG/KG ADMINISTERED INTRAVENOUSLY ON DAY 1 OF EACH 21 DAY CYCLE FOR UP TO 3 CYCLES. (AS PER PROTO
     Route: 042
     Dates: start: 20220603, end: 20220603
  2. RITUXIMAB [Suspect]
     Active Substance: RITUXIMAB
     Indication: Diffuse large B-cell lymphoma
     Dosage: ADMINISTERED AS PER LOCAL PRACTICE AT A DOSE OF 375 MG/M2 INTRAVENOUSLY ON DAY 1 OF EACH 21-DAY CYCL
     Route: 042
     Dates: start: 20220603, end: 20220603
  3. IFOSFAMIDE [Suspect]
     Active Substance: IFOSFAMIDE
     Indication: Diffuse large B-cell lymphoma
     Dosage: 5000 MG/M SQ. ADMINISTERED I.V. OVER A 24 HR PERIOD STARTING ON CYCLE DAY 2. (AS PER PROTOCOL).
     Route: 042
     Dates: start: 20220604, end: 20220605
  4. CARBOPLATIN [Suspect]
     Active Substance: CARBOPLATIN
     Indication: Diffuse large B-cell lymphoma
     Dosage: AUC 5 MAX 800 MG ADMINISTERED I.V. ON CYCLE DAY 2. (AS PER PROTOCOL).
     Route: 042
     Dates: start: 20220604, end: 20220604
  5. ETOPOSIDE [Suspect]
     Active Substance: ETOPOSIDE
     Indication: Diffuse large B-cell lymphoma
     Dosage: 100 MG/M SQ. ADMINISTERED I.V. ON CYCLE DAYS 1, 2 AND 3. (AS PER PROTOCOL).
     Route: 042
     Dates: start: 20220603, end: 20220605

REACTIONS (1)
  - Hypertransaminasaemia [Not Recovered/Not Resolved]

NARRATIVE: CASE EVENT DATE: 20220608
